FAERS Safety Report 6809038-8 (Version None)
Quarter: 2010Q2

REPORT INFORMATION
  Report Type: 
  Country: None (occurrence: None)
  Receive Date: 20100630
  Receipt Date: 20100621
  Transmission Date: 20101027
  Serious: Yes (Hospitalization)
  Sender: FDA-Public Use
  Company Number: 2008BI013041

PATIENT
  Sex: Female

DRUGS (1)
  1. AVONEX [Suspect]
     Indication: MULTIPLE SCLEROSIS
     Route: 030
     Dates: start: 20020323, end: 20080504

REACTIONS (5)
  - ARTHRITIS [None]
  - DEVICE BREAKAGE [None]
  - MULTIPLE SCLEROSIS RELAPSE [None]
  - OSTEOMYELITIS [None]
  - TENDON RUPTURE [None]
